FAERS Safety Report 12345269 (Version 3)
Quarter: 2020Q3

REPORT INFORMATION
  Report Type: Spontaneous
  Country: US (occurrence: US)
  Receive Date: 20160507
  Receipt Date: 20200702
  Transmission Date: 20201102
  Serious: Yes (Hospitalization)
  Sender: FDA-Public Use
  Company Number: US-JNJFOC-20160411181

PATIENT
  Age: 64 Year
  Sex: Female

DRUGS (3)
  1. XARELTO [Suspect]
     Active Substance: RIVAROXABAN
     Indication: PULMONARY EMBOLISM
     Dosage: 15MG; 20MG
     Route: 048
     Dates: start: 20150226, end: 20150507
  2. ASPIRIN                            /00002701/ [Suspect]
     Active Substance: ASPIRIN
     Indication: PULMONARY EMBOLISM
     Route: 065
  3. PLAVIX [Suspect]
     Active Substance: CLOPIDOGREL BISULFATE
     Indication: PULMONARY EMBOLISM
     Route: 065

REACTIONS (3)
  - Contusion [Recovering/Resolving]
  - Gastrointestinal haemorrhage [Recovering/Resolving]
  - Wound haemorrhage [Recovering/Resolving]

NARRATIVE: CASE EVENT DATE: 2015
